FAERS Safety Report 8325019-X (Version None)
Quarter: 2012Q2

REPORT INFORMATION
  Report Type: 
  Country: None (occurrence: None)
  Receive Date: 20120501
  Receipt Date: 20120417
  Transmission Date: 20120825
  Serious: Yes (Hospitalization)
  Sender: FDA-Public Use
  Company Number: JP-MYLANLABS-2012S1008268

PATIENT
  Age: 61 Year
  Sex: Male
  Weight: 52 kg

DRUGS (3)
  1. AMIODARONE HCL [Suspect]
     Indication: CARDIAC DISORDER
     Dosage: 200 MG/DAY
     Route: 065
  2. CARVEDILOL [Concomitant]
     Dosage: 10 MG/DAY
     Route: 065
  3. ENALAPRIL MALEATE [Concomitant]
     Dosage: 5 MG/DAY
     Route: 065

REACTIONS (2)
  - HYPERTHYROIDISM [None]
  - THYROID CANCER [None]
